FAERS Safety Report 13598952 (Version 3)
Quarter: 2017Q3

REPORT INFORMATION
  Report Type: Report from Study
  Country: CA (occurrence: CA)
  Receive Date: 20170531
  Receipt Date: 20170914
  Transmission Date: 20171127
  Serious: Yes (Other)
  Sender: FDA-Public Use
  Company Number: CA-AMGEN-CANSL2017080291

PATIENT
  Age: 69 Year
  Sex: Female

DRUGS (6)
  1. PROLIA [Suspect]
     Active Substance: DENOSUMAB
     Indication: OSTEOPOROSIS
     Dosage: 60 MG, Q6MO
     Route: 058
     Dates: start: 20130515
  2. VITAMIN D [Concomitant]
     Active Substance: CHOLECALCIFEROL
  3. SYNTHROID [Concomitant]
     Active Substance: LEVOTHYROXINE SODIUM
  4. CRESTOR [Concomitant]
     Active Substance: ROSUVASTATIN CALCIUM
  5. VITAMIN B12 [Concomitant]
     Active Substance: CYANOCOBALAMIN
  6. VALSARTAN. [Concomitant]
     Active Substance: VALSARTAN
     Dosage: 80 MG, UNK

REACTIONS (20)
  - Pulmonary embolism [Recovering/Resolving]
  - Muscular weakness [Unknown]
  - Headache [Unknown]
  - Loose tooth [Unknown]
  - Neck pain [Unknown]
  - Constipation [Unknown]
  - Tooth extraction [Unknown]
  - Musculoskeletal pain [Unknown]
  - Gingival bleeding [Not Recovered/Not Resolved]
  - Loss of consciousness [Unknown]
  - Myalgia [Unknown]
  - Pain in extremity [Unknown]
  - Dental restoration failure [Unknown]
  - Angina pectoris [Unknown]
  - Osteonecrosis of jaw [Unknown]
  - Dizziness [Unknown]
  - Frequent bowel movements [Unknown]
  - Dental implantation [Unknown]
  - Dyspnoea [Unknown]
  - Hypoaesthesia [Unknown]

NARRATIVE: CASE EVENT DATE: 2015
